FAERS Safety Report 10786810 (Version 2)
Quarter: 2015Q1

REPORT INFORMATION
  Report Type: Spontaneous
  Country: FR (occurrence: FR)
  Receive Date: 20150211
  Receipt Date: 20150326
  Transmission Date: 20150721
  Serious: No
  Sender: FDA-Public Use
  Company Number: FR-PFIZER INC-2015054486

PATIENT
  Age: 73 Year
  Sex: Female

DRUGS (8)
  1. INEXIUM [Concomitant]
     Active Substance: ESOMEPRAZOLE
     Dosage: 40 MG, UNK
     Dates: start: 20130208
  2. LYRICA [Suspect]
     Active Substance: PREGABALIN
     Indication: OCCIPITAL NEURALGIA
     Dosage: 50 MG, 1X/DAY IN THE EVENING
     Dates: start: 20130208
  3. LYRICA [Suspect]
     Active Substance: PREGABALIN
     Dosage: 50 MG, 3X/DAY
     Dates: start: 20130220, end: 20130415
  4. DAFALGAN [Concomitant]
     Active Substance: ACETAMINOPHEN
     Dosage: 500 MG, 6 TABLETS DAILY IN 3 INTAKES
     Dates: start: 20130220
  5. DUROGESIC [Concomitant]
     Active Substance: FENTANYL
     Dosage: 12 ?G, UNK
     Dates: start: 20130121
  6. VALSARTAN/HYDROCHLOROTHIAZIDE EG [Concomitant]
     Dosage: 160/25
  7. FELDENE [Concomitant]
     Active Substance: PIROXICAM
     Dosage: 20 MG, UNK
     Dates: start: 20130208
  8. LYRICA [Suspect]
     Active Substance: PREGABALIN
     Dosage: 50 MG, 2X/DAY IN THE MORNING AND IN THE EVENING

REACTIONS (1)
  - Hyperhidrosis [Not Recovered/Not Resolved]

NARRATIVE: CASE EVENT DATE: 201302
